FAERS Safety Report 12287780 (Version 1)
Quarter: 2016Q2

REPORT INFORMATION
  Report Type: Report from Study
  Country: US (occurrence: US)
  Receive Date: 20160420
  Receipt Date: 20160420
  Transmission Date: 20160815
  Serious: Yes (Other)
  Sender: FDA-Public Use
  Company Number: US-MDT-ADR-2016-00320

PATIENT
  Age: 66 Year
  Sex: Male

DRUGS (7)
  1. CLONIDINE. [Suspect]
     Active Substance: CLONIDINE
     Dosage: 0.75MCG/DAY
     Route: 037
  2. NUCYNTA [Suspect]
     Active Substance: TAPENTADOL HYDROCHLORIDE
  3. NORTRIPTYLINE [Suspect]
     Active Substance: NORTRIPTYLINE
  4. BACLOFEN. [Suspect]
     Active Substance: BACLOFEN
     Dosage: 1.5MCG/DAY
     Route: 037
  5. BUPIVACAINE. [Suspect]
     Active Substance: BUPIVACAINE
     Dosage: 0.0299MG/DAY
     Route: 037
  6. PREDNISONE. [Suspect]
     Active Substance: PREDNISONE
  7. VALIUM [Suspect]
     Active Substance: DIAZEPAM

REACTIONS (4)
  - Implant site extravasation [Unknown]
  - Post lumbar puncture syndrome [Unknown]
  - Implant site pain [Unknown]
  - Medical device site discharge [Unknown]
